FAERS Safety Report 18242215 (Version 2)
Quarter: 2020Q3

REPORT INFORMATION
  Report Type: Spontaneous
  Country: IT (occurrence: IT)
  Receive Date: 20200908
  Receipt Date: 20200914
  Transmission Date: 20201103
  Serious: Yes (Hospitalization, Other)
  Sender: FDA-Public Use
  Company Number: IT-PFIZER INC-2020342280

PATIENT
  Age: 65 Year
  Sex: Male

DRUGS (2)
  1. OXALIPLATIN. [Suspect]
     Active Substance: OXALIPLATIN
     Indication: LUNG NEOPLASM MALIGNANT
     Dosage: 104 MG/M2 (WHICH CORRESPONDS TO THE 80% OF THE STANDARD DOSE, DAY 1 EVERY 3 WEEKS)
     Dates: start: 20190926
  2. CAPECITABINE. [Suspect]
     Active Substance: CAPECITABINE
     Indication: LUNG NEOPLASM MALIGNANT
     Dosage: UNK (1.6 G/M2/DAY, DAYS 1?15 EVERY 3 WEEKS)
     Dates: start: 20190926

REACTIONS (1)
  - Hyperammonaemic encephalopathy [Recovered/Resolved]

NARRATIVE: CASE EVENT DATE: 20191007
